FAERS Safety Report 5270483-6 (Version None)
Quarter: 2007Q1

REPORT INFORMATION
  Report Type: 
  Country: None (occurrence: None)
  Receive Date: 20070315
  Receipt Date: 20070312
  Transmission Date: 20070707
  Serious: Yes (Hospitalization)
  Sender: FDA-Public Use
  Company Number: S07-USA-00445-01

PATIENT
  Age: 84 Year
  Sex: Female
  Weight: 61.2356 kg

DRUGS (11)
  1. LEXAPRO [Suspect]
     Indication: DEPRESSION
     Dosage: 10 MG QD PO
     Route: 048
     Dates: start: 20061115, end: 20061210
  2. TOPROL-XL [Concomitant]
  3. ACTONEL [Concomitant]
  4. COSOPT (DORZOLAMIDE/TIMOLOL) [Concomitant]
  5. TRAVATAN [Concomitant]
  6. PLAVIX [Concomitant]
  7. LORAZEPAM [Concomitant]
  8. PRAVACHOL [Concomitant]
  9. CENTRUM [Concomitant]
  10. MICARDIS [Concomitant]
  11. HYDROCHLOROTHIAZIDE [Concomitant]

REACTIONS (8)
  - ABASIA [None]
  - ASTHENIA [None]
  - CONFUSIONAL STATE [None]
  - HAEMATOCRIT DECREASED [None]
  - HAEMOGLOBIN DECREASED [None]
  - HYPOVOLAEMIA [None]
  - INAPPROPRIATE ANTIDIURETIC HORMONE SECRETION [None]
  - INCOHERENT [None]
